FAERS Safety Report 7493575-X (Version None)
Quarter: 2011Q2

REPORT INFORMATION
  Report Type: 
  Country: None (occurrence: None)
  Receive Date: 20110520
  Receipt Date: 20110512
  Transmission Date: 20111010
  Serious: Yes (Hospitalization)
  Sender: FDA-Public Use
  Company Number: FR-PFIZER INC-A208027

PATIENT
  Age: 88 Year
  Sex: Female

DRUGS (7)
  1. PANTOPRAZOLE [Suspect]
     Indication: GASTROOESOPHAGEAL REFLUX DISEASE
     Dosage: 1 DOSE FORM (DF), 1X/DAY
     Route: 048
     Dates: start: 20011012, end: 20020225
  2. GAVISCON [Suspect]
     Dosage: 1 DF, 4X/DAY (QID)
     Route: 048
  3. IMOVANE [Suspect]
     Dosage: 7.5 MG, 1X/DAY
     Route: 048
  4. TELMISARTAN [Suspect]
     Route: 048
     Dates: start: 20000421, end: 20020224
  5. ACETAMINOPHEN [Suspect]
     Dosage: UNK
     Route: 048
  6. FELODIPINE [Suspect]
     Dosage: 1 DF, 1X/DAY
     Route: 048
     Dates: start: 19981017, end: 20020224
  7. FELDENE [Suspect]
     Dosage: AS NEEDED, PRN
     Route: 048

REACTIONS (5)
  - PYELONEPHRITIS [None]
  - HYPONATRAEMIA [None]
  - ESCHERICHIA URINARY TRACT INFECTION [None]
  - CONFUSIONAL STATE [None]
  - CONVULSION [None]
